FAERS Safety Report 6276180-2 (Version None)
Quarter: 2009Q3

REPORT INFORMATION
  Report Type: 
  Country: None (occurrence: None)
  Receive Date: 20090722
  Receipt Date: 20090715
  Transmission Date: 20100115
  Serious: Yes (Other)
  Sender: FDA-Public Use
  Company Number: IE-BRISTOL-MYERS SQUIBB COMPANY-14641641

PATIENT
  Age: 62 Year
  Sex: Male

DRUGS (11)
  1. CARBIDOPA + LEVODOPA [Suspect]
     Indication: PARKINSON'S DISEASE
     Dosage: DISCONTINED ON 01-MAY-09
     Route: 048
     Dates: start: 20080807
  2. STALEVO 100 [Suspect]
     Indication: PARKINSON'S DISEASE
     Dosage: DISCONTINED ON 01-MAY-09
     Route: 065
     Dates: start: 20080911
  3. PRAMIPEXOLE DIHYDROCHLORIDE [Suspect]
     Route: 065
     Dates: start: 20030101, end: 20090501
  4. RIVOTRIL [Concomitant]
  5. ATENOLOL [Concomitant]
  6. BENDROFLUMETHIAZIDE + KCL [Concomitant]
  7. LOSARTAN POTASSIUM [Concomitant]
  8. CRESTOR [Concomitant]
  9. SEROQUEL [Concomitant]
  10. SEROXAT [Concomitant]
  11. CARBIDOPA-LEVODOPA [Concomitant]
     Dosage: 1 DF = 50/200MG

REACTIONS (4)
  - HYPERSEXUALITY [None]
  - LIBIDO INCREASED [None]
  - PATHOLOGICAL GAMBLING [None]
  - PERSONALITY DISORDER [None]
